FAERS Safety Report 11930878 (Version 1)
Quarter: 2016Q1

REPORT INFORMATION
  Report Type: Report from Study
  Country: BR (occurrence: BR)
  Receive Date: 20160120
  Receipt Date: 20160120
  Transmission Date: 20160526
  Serious: Yes (Death, Hospitalization)
  Sender: FDA-Public Use
  Company Number: PHHY2016BR006114

PATIENT
  Sex: Male
  Weight: 75 kg

DRUGS (2)
  1. DIOVAN HCT [Suspect]
     Active Substance: HYDROCHLOROTHIAZIDE\VALSARTAN
     Indication: HEART RATE ABNORMAL
     Dosage: 1 DF (160/12.5 MG) QD, (IN THE MORNING)
     Route: 065
     Dates: end: 20080301
  2. DIOVAN HCT [Suspect]
     Active Substance: HYDROCHLOROTHIAZIDE\VALSARTAN
     Indication: HYPERTENSION

REACTIONS (4)
  - Heart rate decreased [Unknown]
  - Dementia Alzheimer^s type [Fatal]
  - Cardiac disorder [Unknown]
  - Paralysis [Fatal]
